FAERS Safety Report 5975647-1 (Version None)
Quarter: 2008Q4

REPORT INFORMATION
  Report Type: 
  Country: None (occurrence: None)
  Receive Date: 20081128
  Receipt Date: 20081116
  Transmission Date: 20090506
  Serious: Yes (Other)
  Sender: FDA-Public Use
  Company Number: CHPA2008US19678

PATIENT
  Age: 97 Year
  Sex: Female

DRUGS (2)
  1. FERROUS SULFATE TAB [Suspect]
     Indication: ANAEMIA
     Dosage: 160 MG, ONCE/ SINGLE, ORAL
     Route: 048
     Dates: start: 20081115, end: 20081115
  2. PREVACID (LANSOPRAZOLE) ONGOING [Concomitant]

REACTIONS (5)
  - HALLUCINATION, VISUAL [None]
  - INSOMNIA [None]
  - LETHARGY [None]
  - LOGORRHOEA [None]
  - OCULAR HYPERAEMIA [None]
